FAERS Safety Report 4345599-9 (Version None)
Quarter: 2004Q2

REPORT INFORMATION
  Report Type: 
  Country: None (occurrence: None)
  Receive Date: 20040421
  Receipt Date: 20040406
  Transmission Date: 20050107
  Serious: Yes (Hospitalization)
  Sender: FDA-Public Use
  Company Number: 1580

PATIENT
  Age: 83 Year
  Sex: Female

DRUGS (4)
  1. AVINZA [Suspect]
     Indication: PAIN
     Dosage: 30 MG QD PO
     Route: 048
     Dates: start: 20040405, end: 20040406
  2. CLOPIDOGREL BISULFATE [Concomitant]
  3. UNSPECIFIED BETA BLOCKER [Concomitant]
  4. UNSPECIFIED CHOLESTEROL MEDICATION [Concomitant]

REACTIONS (2)
  - CEREBRAL ISCHAEMIA [None]
  - TRANSIENT ISCHAEMIC ATTACK [None]
